FAERS Safety Report 5093310-9 (Version None)
Quarter: 2006Q3

REPORT INFORMATION
  Report Type: 
  Country: None (occurrence: None)
  Receive Date: 20060828
  Receipt Date: 20060815
  Transmission Date: 20061208
  Serious: Yes (Disabling, Other)
  Sender: FDA-Public Use
  Company Number: 2006085834

PATIENT
  Age: 60 Year
  Sex: Male

DRUGS (4)
  1. ZYVOX [Suspect]
     Indication: STAPHYLOCOCCAL SEPSIS
     Dosage: 1200 MG (600 MG, FREQUENCY:  BID), INTRAVENOUS
     Route: 042
     Dates: start: 20060703
  2. VANCOMYCIN [Concomitant]
  3. FINIBAX (DORIPENEM) [Concomitant]
  4. DIPRIVAN [Concomitant]

REACTIONS (1)
  - HYPOACUSIS [None]
